FAERS Safety Report 14261174 (Version 5)
Quarter: 2018Q3

REPORT INFORMATION
  Report Type: Other
  Country: ES (occurrence: ES)
  Receive Date: 20171207
  Receipt Date: 20180822
  Transmission Date: 20181010
  Serious: Yes (Life-Threatening, Hospitalization, Congenital Anomaly, Other)
  Sender: FDA-Public Use
  Company Number: ES-MACLEODS PHARMACEUTICALS US LTD-MAC2017006491

PATIENT

DRUGS (8)
  1. AMLODIPINE BESYLATE. [Suspect]
     Active Substance: AMLODIPINE BESYLATE
     Indication: ESSENTIAL HYPERTENSION
     Dosage: UNK
     Route: 065
  2. NICARDIPINE [Suspect]
     Active Substance: NICARDIPINE
     Indication: PRODUCT USED FOR UNKNOWN INDICATION
     Dosage: UNK
     Route: 065
  3. OLMESARTAN TABLET [Suspect]
     Active Substance: OLMESARTAN
     Indication: ESSENTIAL HYPERTENSION
  4. CAPTOPRIL. [Suspect]
     Active Substance: CAPTOPRIL
     Indication: PRODUCT USED FOR UNKNOWN INDICATION
     Dosage: UNK
     Route: 065
  5. AMLODIPINE BESYLATE. [Suspect]
     Active Substance: AMLODIPINE BESYLATE
     Indication: EXPOSURE DURING PREGNANCY
     Dosage: UNK
     Route: 064
  6. OLMESARTAN TABLET [Suspect]
     Active Substance: OLMESARTAN
     Indication: PRODUCT USED FOR UNKNOWN INDICATION
  7. OLMESARTAN TABLET [Suspect]
     Active Substance: OLMESARTAN
     Indication: EXPOSURE DURING PREGNANCY
     Dosage: UNK
     Route: 064
  8. FUROSEMIDE. [Suspect]
     Active Substance: FUROSEMIDE
     Indication: PRODUCT USED FOR UNKNOWN INDICATION
     Dosage: UNK
     Route: 065

REACTIONS (18)
  - Proteinuria [Unknown]
  - Pulmonary hypoplasia [Unknown]
  - Potter^s syndrome [Recovering/Resolving]
  - Areflexia [Unknown]
  - Pneumothorax [Unknown]
  - Hypotension [Recovered/Resolved]
  - Kidney small [Unknown]
  - Foetal exposure during pregnancy [Unknown]
  - Off label use [Not Recovered/Not Resolved]
  - Anaemia [Unknown]
  - Anuria [Unknown]
  - Oligohydramnios [Not Recovered/Not Resolved]
  - Hypertension [Unknown]
  - Premature baby [Unknown]
  - Renal failure neonatal [Recovering/Resolving]
  - Hypotonia neonatal [Recovered/Resolved]
  - Congenital anomaly [Unknown]
  - Renal failure [Unknown]
